FAERS Safety Report 10255368 (Version 1)
Quarter: 2014Q2

REPORT INFORMATION
  Report Type: Report from Study
  Country: US (occurrence: None)
  Receive Date: 20140620
  Receipt Date: 20140620
  Transmission Date: 20141212
  Serious: Yes (Death, Other)
  Sender: FDA-Public Use
  Company Number: 2014-19767

PATIENT
  Sex: 0

DRUGS (1)
  1. EYLEA (ALFIBERCEPT) INJECTION [Suspect]
     Route: 031
     Dates: start: 20130823, end: 20140220

REACTIONS (1)
  - Death [None]
